FAERS Safety Report 8818689 (Version 1)
Quarter: 2012Q4

REPORT INFORMATION
  Report Type: 
  Country: CA (occurrence: CA)
  Receive Date: 20121001
  Receipt Date: 20121001
  Transmission Date: 20130627
  Serious: Yes (Other)
  Sender: FDA-Public Use
  Company Number: CA-ROCHE-1137756

PATIENT
  Age: 38 None
  Sex: Female
  Weight: 52.2 kg

DRUGS (5)
  1. XOLAIR [Suspect]
     Indication: ASTHMA
     Route: 058
     Dates: start: 20061212
  2. XOLAIR [Suspect]
     Route: 058
     Dates: start: 20091215
  3. XOLAIR [Suspect]
     Route: 058
     Dates: start: 20120904
  4. ZENHALE [Concomitant]
  5. ATROVENT [Concomitant]

REACTIONS (12)
  - Nasopharyngitis [Recovered/Resolved]
  - Pyrexia [Recovered/Resolved]
  - Vomiting [Unknown]
  - Lower respiratory tract infection [Unknown]
  - Pulmonary congestion [Unknown]
  - Productive cough [Unknown]
  - Wheezing [Unknown]
  - Dyspnoea [Unknown]
  - Myalgia [Unknown]
  - Cough [Unknown]
  - Chest discomfort [Unknown]
  - Influenza [Unknown]
